FAERS Safety Report 18671104 (Version 1)
Quarter: 2020Q4

REPORT INFORMATION
  Report Type: Spontaneous
  Country: US (occurrence: US)
  Receive Date: 20201228
  Receipt Date: 20201228
  Transmission Date: 20210114
  Serious: No
  Sender: FDA-Public Use
  Company Number: US-PFIZER INC-2020507542

PATIENT
  Age: 55 Year
  Sex: Female

DRUGS (1)
  1. XANAX [Suspect]
     Active Substance: ALPRAZOLAM
     Dosage: HALF A TABLET IN AM BEFORE WORK TO GET THROUGH THEN ANOTHER QUARTER TABLET TO GET THROUGH WORK

REACTIONS (3)
  - Hot flush [Unknown]
  - Oral pain [Recovered/Resolved]
  - Rhinalgia [Recovered/Resolved]
